FAERS Safety Report 5709379-1 (Version None)
Quarter: 2008Q2

REPORT INFORMATION
  Report Type: 
  Country: None (occurrence: None)
  Receive Date: 20080417
  Receipt Date: 20080417
  Transmission Date: 20081010
  Serious: Yes (Hospitalization, Disabling)
  Sender: FDA-Public Use
  Company Number: None

PATIENT
  Sex: Male
  Weight: 63.5036 kg

DRUGS (4)
  1. MOBIC [Suspect]
     Indication: INFLAMMATION
     Dosage: MOBIC 7.5 1X ORAL
     Route: 048
     Dates: start: 19960101, end: 20080101
  2. CELEBREX [Suspect]
     Indication: ARTHRITIS
     Dosage: CELEBREX 1X ORAL
     Route: 048
  3. DURAGESIC-100 [Concomitant]
  4. FENTENOL [Concomitant]

REACTIONS (5)
  - ABDOMINAL PAIN UPPER [None]
  - CARDIAC DISORDER [None]
  - GASTRIC DISORDER [None]
  - MYOCARDIAL INFARCTION [None]
  - RECTAL HAEMORRHAGE [None]
